FAERS Safety Report 6890411-7 (Version None)
Quarter: 2010Q3

REPORT INFORMATION
  Report Type: 
  Country: None (occurrence: None)
  Receive Date: 20100730
  Receipt Date: 20081022
  Transmission Date: 20110219
  Serious: No
  Sender: FDA-Public Use
  Company Number: US-PFIZER INC-2008089740

PATIENT
  Sex: Female

DRUGS (1)
  1. LIPITOR [Suspect]
     Dates: start: 20030101

REACTIONS (2)
  - BLOOD CHOLESTEROL INCREASED [None]
  - WRONG TECHNIQUE IN DRUG USAGE PROCESS [None]
